FAERS Safety Report 16396749 (Version 2)
Quarter: 2019Q3

REPORT INFORMATION
  Report Type: Spontaneous
  Country: SK (occurrence: SK)
  Receive Date: 20190606
  Receipt Date: 20190809
  Transmission Date: 20191004
  Serious: Yes (Death, Hospitalization, Other)
  Sender: FDA-Public Use
  Company Number: SK-REGENERON PHARMACEUTICALS, INC.-2019-35153

PATIENT

DRUGS (2)
  1. EYLEA [Suspect]
     Active Substance: AFLIBERCEPT
     Dosage: OS
     Route: 031
     Dates: start: 20180524
  2. EYLEA [Suspect]
     Active Substance: AFLIBERCEPT
     Indication: DIABETIC RETINAL OEDEMA
     Dosage: OD, LAST DOSE PRIOR THE EVENT WAS MAR-2019, TOTAL OF 8 EYLEA DOSES
     Route: 031
     Dates: start: 20180426

REACTIONS (13)
  - Hydrocephalus [Unknown]
  - Altered state of consciousness [Unknown]
  - Pseudomonas infection [Unknown]
  - Cerebellar ischaemia [Unknown]
  - Intraventricular haemorrhage [Unknown]
  - Vomiting [Unknown]
  - Bronchitis [Fatal]
  - Hypertension [Unknown]
  - Hyperglycaemia [Unknown]
  - Vertigo [Unknown]
  - Bradycardia [Unknown]
  - Renal failure [Unknown]
  - Klebsiella infection [Unknown]

NARRATIVE: CASE EVENT DATE: 20190515
